FAERS Safety Report 5527149-4 (Version None)
Quarter: 2007Q4

REPORT INFORMATION
  Report Type: 
  Country: None (occurrence: None)
  Receive Date: 20071127
  Receipt Date: 20071112
  Transmission Date: 20080405
  Serious: No
  Sender: FDA-Public Use
  Company Number: US-BOEHRINGER INGELHEIM PHARMACEUTICALS, INC.-2007-BP-24434BP

PATIENT
  Sex: Female

DRUGS (3)
  1. SPIRIVA [Suspect]
     Indication: DYSPNOEA
     Route: 055
     Dates: end: 20071030
  2. VERAPAMIL [Concomitant]
     Indication: CARDIAC DISORDER
  3. MAXZIDE [Concomitant]
     Indication: CARDIAC DISORDER

REACTIONS (2)
  - CONSTIPATION [None]
  - DYSURIA [None]
